FAERS Safety Report 5660312-0 (Version None)
Quarter: 2008Q1

REPORT INFORMATION
  Report Type: 
  Country: None (occurrence: None)
  Receive Date: 20080212
  Receipt Date: 20071115
  Transmission Date: 20080703
  Serious: Yes (Other)
  Sender: FDA-Public Use
  Company Number: US-WYE-H01343207

PATIENT
  Age: 41 Year
  Sex: Female
  Weight: 93.07 kg

DRUGS (2)
  1. LYBREL [Suspect]
     Indication: CONTRACEPTION
     Dosage: 1 TABLET 1X PER 1 DAY, ORAL
     Route: 048
     Dates: start: 20071021, end: 20071028
  2. NEXIUM [Concomitant]

REACTIONS (2)
  - DYSPNOEA [None]
  - RASH [None]
